FAERS Safety Report 24529078 (Version 1)
Quarter: 2024Q4

REPORT INFORMATION
  Report Type: Spontaneous
  Country: US (occurrence: None)
  Receive Date: 20241019
  Receipt Date: 20241019
  Transmission Date: 20250115
  Serious: Yes (Disabling)
  Sender: Public
  Company Number: None

PATIENT
  Age: 68 Year
  Sex: Female
  Weight: 77.85 kg

DRUGS (8)
  1. PROHANCE [Suspect]
     Active Substance: GADOTERIDOL
     Indication: X-ray with contrast
     Dosage: OTHER QUANTITY : 1 INJECTION(S);?FREQUENCY : DAILY;?
     Route: 042
     Dates: start: 20241016, end: 20241016
  2. B-12 INJECTIONS [Concomitant]
  3. ALBUTEROL SULFATE [Concomitant]
     Active Substance: ALBUTEROL SULFATE
  4. GENERIC FOR FLEXERIL [Concomitant]
  5. CLOTRIMAZOLE [Concomitant]
     Active Substance: CLOTRIMAZOLE
  6. CHOLECALCIFEROL [Concomitant]
     Active Substance: CHOLECALCIFEROL
  7. MULTI-VIAMIN FOR WOMEN [Concomitant]
  8. LUBRICATING EYES DROPS [Concomitant]

REACTIONS (7)
  - Chest discomfort [None]
  - Diarrhoea [None]
  - Bladder irritation [None]
  - Urinary incontinence [None]
  - Secretion discharge [None]
  - Dry throat [None]
  - Throat irritation [None]

NARRATIVE: CASE EVENT DATE: 20241016
